FAERS Safety Report 5273099-0 (Version None)
Quarter: 2007Q1

REPORT INFORMATION
  Report Type: 
  Country: None (occurrence: None)
  Receive Date: 20070316
  Receipt Date: 20070308
  Transmission Date: 20070707
  Serious: Yes (Hospitalization)
  Sender: FDA-Public Use
  Company Number: 237935

PATIENT
  Age: 69 Year
  Sex: Female

DRUGS (2)
  1. ALTEPLASE (ALTEPLASE) PWDR + SOLVENT, INFUSION SOLN [Suspect]
     Indication: CEREBRAL INFARCTION
     Dosage: 28.8 MG, INTRAVENOUS
     Route: 042
     Dates: start: 20070214, end: 20070214
  2. RADICUT (EDARAVONE) [Concomitant]

REACTIONS (2)
  - BRAIN STEM HAEMORRHAGE [None]
  - DISSEMINATED INTRAVASCULAR COAGULATION [None]
